FAERS Safety Report 5761101-9 (Version None)
Quarter: 2008Q2

REPORT INFORMATION
  Report Type: 
  Country: None (occurrence: None)
  Receive Date: 20080606
  Receipt Date: 20080530
  Transmission Date: 20081010
  Serious: Yes (Hospitalization)
  Sender: FDA-Public Use
  Company Number: DE-ABBOTT-08P-062-0454160-00

PATIENT
  Sex: Female
  Weight: 55 kg

DRUGS (2)
  1. RITONAVIR SOFT GELATIN CAPSULES (NOT ADMINISTERED) [Suspect]
     Indication: HIV INFECTION
  2. KALETRA [Suspect]
     Indication: HIV INFECTION
     Dosage: 800/200
     Route: 048
     Dates: start: 20070321, end: 20070830

REACTIONS (1)
  - PERIPHERAL NERVE LESION [None]
